FAERS Safety Report 9192152 (Version 1)
Quarter: 2013Q1

REPORT INFORMATION
  Report Type: Spontaneous
  Country: US (occurrence: None)
  Receive Date: 20130326
  Receipt Date: 20130326
  Transmission Date: 20140127
  Serious: Yes (Hospitalization)
  Sender: FDA-Public Use
  Company Number: None

PATIENT
  Age: 59 Year
  Sex: Male
  Weight: 71.8 kg

DRUGS (1)
  1. TELAPREVIR [Suspect]
     Indication: HEPATITIS C
     Route: 048
     Dates: start: 20120622, end: 20120627

REACTIONS (6)
  - Urate nephropathy [None]
  - Fatigue [None]
  - Nausea [None]
  - Vomiting [None]
  - Urine output decreased [None]
  - Blood creatinine increased [None]
